FAERS Safety Report 4346343-1 (Version None)
Quarter: 2004Q1

REPORT INFORMATION
  Report Type: 
  Country: None (occurrence: None)
  Receive Date: 20040325
  Receipt Date: 20040114
  Transmission Date: 20041129
  Serious: No
  Sender: FDA-Public Use
  Company Number: USA030946117

PATIENT
  Age: 68 Year
  Sex: Female
  Weight: 55 kg

DRUGS (3)
  1. FORTEO [Suspect]
     Indication: OSTEOPOROSIS
     Dosage: 20 UG/DAY
     Dates: start: 20030702
  2. PRAVACHOL [Concomitant]
  3. LIPITOR [Concomitant]

REACTIONS (8)
  - BONE PAIN [None]
  - CARTILAGE INJURY [None]
  - DIZZINESS [None]
  - FALL [None]
  - FATIGUE [None]
  - JOINT SPRAIN [None]
  - LIGAMENT INJURY [None]
  - NAUSEA [None]
